FAERS Safety Report 17025326 (Version 1)
Quarter: 2019Q4

REPORT INFORMATION
  Report Type: Spontaneous
  Country: US (occurrence: US)
  Receive Date: 20191008
  Receipt Date: 20191008
  Transmission Date: 20200122
  Serious: Yes (Hospitalization)
  Sender: FDA-Public Use
  Company Number: None

PATIENT
  Sex: Male
  Weight: 55.8 kg

DRUGS (1)
  1. CISPLATIN. [Suspect]
     Active Substance: CISPLATIN

REACTIONS (7)
  - Tooth disorder [None]
  - Proteus test positive [None]
  - Escherichia test positive [None]
  - Diarrhoea [None]
  - Clostridium test positive [None]
  - Gingival disorder [None]
  - Scab [None]

NARRATIVE: CASE EVENT DATE: 20180619
